FAERS Safety Report 23414097 (Version 9)
Quarter: 2024Q2

REPORT INFORMATION
  Report Type: Spontaneous
  Country: US (occurrence: US)
  Receive Date: 20240117
  Receipt Date: 20240619
  Transmission Date: 20240716
  Serious: Yes (Other)
  Sender: FDA-Public Use
  Company Number: US-BRISTOL-MYERS SQUIBB COMPANY-2023-169795

PATIENT
  Age: 72 Year
  Sex: Female
  Weight: 48.08 kg

DRUGS (4)
  1. REVLIMID [Suspect]
     Active Substance: LENALIDOMIDE
     Indication: Plasma cell myeloma
     Dosage: FREQUENCY: TAKE 1 CAPSULE ON DAYS 1-14 OF EACH 21 DAY CYCLE. TAKE WHOLE W/WATER W OR W/OUT FOOD AT T
     Route: 048
     Dates: start: 20231212
  2. REVLIMID [Suspect]
     Active Substance: LENALIDOMIDE
     Dosage: FREQUENCY: TAKE 1 CAPSULE ON DAYS 1-14 OF EACH 21 DAY CYCLE. TAKE WHOLE W/WATER W OR W/OUT FOOD AT T
     Route: 048
     Dates: start: 20240117
  3. REVLIMID [Suspect]
     Active Substance: LENALIDOMIDE
     Dosage: FREQUENCY: TAKE 1 CAPSULE ON DAYS 1-14 OF EACH 21 DAY CYCLE. TAKE WHOLE W/WATER W OR W/OUT FOOD AT T
     Route: 048
     Dates: start: 2024
  4. CIPRO [Concomitant]
     Active Substance: CIPROFLOXACIN\CIPROFLOXACIN HYDROCHLORIDE
     Indication: Gangrene
     Dates: start: 202402

REACTIONS (10)
  - Off label use [Unknown]
  - Localised infection [Unknown]
  - Urticaria [Recovered/Resolved]
  - Appetite disorder [Not Recovered/Not Resolved]
  - Weight decreased [Not Recovered/Not Resolved]
  - Decreased appetite [Not Recovered/Not Resolved]
  - Dysgeusia [Unknown]
  - Ageusia [Unknown]
  - Malaise [Recovering/Resolving]
  - Fatigue [Recovering/Resolving]
